FAERS Safety Report 8715568 (Version 3)
Quarter: 2012Q4

REPORT INFORMATION
  Report Type: Report from Study
  Country: JP (occurrence: JP)
  Receive Date: 20120809
  Receipt Date: 20121231
  Transmission Date: 20130627
  Serious: Yes (Other)
  Sender: FDA-Public Use
  Company Number: JP-JNJFOC-20120608100

PATIENT
  Age: 58 Year
  Sex: Female
  Weight: 44 kg

DRUGS (7)
  1. GOLIMUMAB [Suspect]
     Indication: RHEUMATOID ARTHRITIS
     Route: 058
     Dates: start: 20120530
  2. GOLIMUMAB [Suspect]
     Indication: RHEUMATOID ARTHRITIS
     Route: 058
     Dates: start: 20120627
  3. METHOTREXATE [Concomitant]
     Indication: RHEUMATOID ARTHRITIS
     Route: 048
  4. LOXONIN [Concomitant]
     Indication: RHEUMATOID ARTHRITIS
     Route: 048
  5. OMEPRAL [Concomitant]
     Indication: PROPHYLAXIS
     Route: 048
  6. BENET [Concomitant]
     Indication: OSTEOPOROSIS
  7. FOLIAMIN [Concomitant]
     Indication: PROPHYLAXIS

REACTIONS (2)
  - Henoch-Schonlein purpura [Recovering/Resolving]
  - Blister [Recovered/Resolved]
